FAERS Safety Report 24218054 (Version 2)
Quarter: 2024Q3

REPORT INFORMATION
  Report Type: Spontaneous
  Country: AU (occurrence: AU)
  Receive Date: 20240816
  Receipt Date: 20240820
  Transmission Date: 20241016
  Serious: Yes (Hospitalization, Other)
  Sender: PFIZER
  Company Number: AU-MLMSERVICE-20240801-PI150360-00082-1

PATIENT
  Age: 76 Year
  Sex: Male

DRUGS (2)
  1. CARBOPLATIN [Suspect]
     Active Substance: CARBOPLATIN
     Indication: Metastatic carcinoma of the bladder
     Dosage: AUC 5 DAY 1 FULL DOSE
     Route: 042
  2. ETOPOSIDE [Suspect]
     Active Substance: ETOPOSIDE
     Indication: Metastatic carcinoma of the bladder
     Dosage: 100 MG/M2 DAYS 1-3 AS AN INPATIENT ON DAY 13 OF ADMISSION

REACTIONS (4)
  - Tumour lysis syndrome [Unknown]
  - Pancytopenia [Recovered/Resolved]
  - Febrile neutropenia [Unknown]
  - Off label use [Unknown]
